FAERS Safety Report 6723470-2 (Version None)
Quarter: 2010Q2

REPORT INFORMATION
  Report Type: 
  Country: None (occurrence: None)
  Receive Date: 20100513
  Receipt Date: 20100506
  Transmission Date: 20101027
  Serious: Yes (Life-Threatening, Hospitalization, Other)
  Sender: FDA-Public Use
  Company Number: FR-BRISTOL-MYERS SQUIBB COMPANY-15094881

PATIENT
  Age: 44 Year
  Sex: Male

DRUGS (8)
  1. SPRYCEL [Suspect]
     Indication: CHRONIC MYELOID LEUKAEMIA
     Route: 048
     Dates: start: 20090804
  2. PLAVIX [Concomitant]
  3. TAHOR [Concomitant]
  4. AMLOR [Concomitant]
  5. TERCIAN [Concomitant]
  6. TRANXENE [Concomitant]
  7. ATENOLOL [Concomitant]
  8. ZOLPIDEM [Concomitant]

REACTIONS (3)
  - DEPRESSION [None]
  - OVERDOSE [None]
  - SUICIDE ATTEMPT [None]
